FAERS Safety Report 8248030-6 (Version None)
Quarter: 2012Q1

REPORT INFORMATION
  Report Type: 
  Country: None (occurrence: None)
  Receive Date: 20120330
  Receipt Date: 20120319
  Transmission Date: 20120608
  Serious: Yes (Other)
  Sender: FDA-Public Use
  Company Number: US-ROCHE-718701

PATIENT
  Sex: Male
  Weight: 62.6 kg

DRUGS (1)
  1. ACCUTANE [Suspect]
     Indication: ACNE
     Route: 065
     Dates: start: 19850601, end: 19850901

REACTIONS (8)
  - INFLAMMATORY BOWEL DISEASE [None]
  - ANAL FISTULA [None]
  - COLITIS ULCERATIVE [None]
  - GASTROINTESTINAL INJURY [None]
  - ANAL STENOSIS [None]
  - PERIRECTAL ABSCESS [None]
  - EMOTIONAL DISTRESS [None]
  - INTESTINAL HAEMORRHAGE [None]
